FAERS Safety Report 13272582 (Version 1)
Quarter: 2017Q1

REPORT INFORMATION
  Report Type: Spontaneous
  Country: US (occurrence: US)
  Receive Date: 20170227
  Receipt Date: 20170227
  Transmission Date: 20170428
  Serious: No
  Sender: FDA-Public Use
  Company Number: US-PFIZER INC-2017077807

PATIENT
  Age: 61 Year
  Sex: Female
  Weight: 68.48 kg

DRUGS (2)
  1. HYDROMORPHONE HYDROCHLORIDE. [Suspect]
     Active Substance: HYDROMORPHONE HYDROCHLORIDE
     Indication: PAIN
     Dosage: 4 MG, AS NEEDED (EVERY 6 OR 8 HOURS AS NEEDED)
  2. HYDROMORPHONE HYDROCHLORIDE. [Suspect]
     Active Substance: HYDROMORPHONE HYDROCHLORIDE
     Indication: NEUROPATHY PERIPHERAL

REACTIONS (1)
  - Drug ineffective for unapproved indication [Unknown]
